FAERS Safety Report 23155129 (Version 2)
Quarter: 2023Q4

REPORT INFORMATION
  Report Type: Spontaneous
  Country: NL (occurrence: NL)
  Receive Date: 20231107
  Receipt Date: 20231128
  Transmission Date: 20240110
  Serious: Yes (Hospitalization)
  Sender: FDA-Public Use
  Company Number: NL-ELI_LILLY_AND_COMPANY-NL202311000867

PATIENT
  Age: 63 Year
  Sex: Male

DRUGS (2)
  1. SELPERCATINIB [Suspect]
     Active Substance: SELPERCATINIB
     Indication: Product used for unknown indication
     Dosage: 160 MG, BID
     Route: 048
     Dates: start: 20221117, end: 20231025
  2. SELPERCATINIB [Suspect]
     Active Substance: SELPERCATINIB
     Dosage: 160 MG, BID
     Route: 048
     Dates: start: 20231109

REACTIONS (11)
  - Renal impairment [Unknown]
  - Glomerular filtration rate decreased [Unknown]
  - Early satiety [Unknown]
  - Gouty arthritis [Recovered/Resolved]
  - Hypophagia [Unknown]
  - Diverticulitis [Unknown]
  - Malaise [Unknown]
  - Asthenia [Unknown]
  - Fatigue [Unknown]
  - Blood creatinine increased [Unknown]
  - Diarrhoea [Unknown]

NARRATIVE: CASE EVENT DATE: 20231025
